FAERS Safety Report 12630236 (Version 3)
Quarter: 2016Q4

REPORT INFORMATION
  Report Type: Spontaneous
  Country: US (occurrence: US)
  Receive Date: 20160808
  Receipt Date: 20161107
  Transmission Date: 20170207
  Serious: Yes (Death, Hospitalization, Other)
  Sender: FDA-Public Use
  Company Number: US-BAYER-2016-148377

PATIENT
  Age: 49 Year
  Sex: Male

DRUGS (3)
  1. GADAVIST [Suspect]
     Active Substance: GADOBUTROL
     Indication: HYPERPROLACTINAEMIA
     Dosage: 15 ML, ONCE
     Route: 042
     Dates: start: 20160705, end: 20160705
  2. GADAVIST [Suspect]
     Active Substance: GADOBUTROL
     Indication: NUCLEAR MAGNETIC RESONANCE IMAGING BRAIN
  3. GADAVIST [Suspect]
     Active Substance: GADOBUTROL
     Indication: PITUITARY TUMOUR BENIGN

REACTIONS (10)
  - Acute myocardial infarction [Fatal]
  - Cardiac arrest [Fatal]
  - Cold sweat [None]
  - Blood glucose increased [None]
  - Unresponsive to stimuli [None]
  - Off label use [None]
  - Arrhythmia [Fatal]
  - Respiratory arrest [None]
  - Swelling [None]
  - Dyspnoea [None]

NARRATIVE: CASE EVENT DATE: 20160705
